APPROVED DRUG PRODUCT: ETHYNODIOL DIACETATE AND ETHINYL ESTRADIOL
Active Ingredient: ETHINYL ESTRADIOL; ETHYNODIOL DIACETATE
Strength: 0.035MG;1MG
Dosage Form/Route: TABLET;ORAL-28
Application: A204703 | Product #001 | TE Code: AB
Applicant: XIROMED LLC
Approved: Jul 28, 2016 | RLD: No | RS: No | Type: RX